FAERS Safety Report 4524421-1 (Version None)
Quarter: 2004Q4

REPORT INFORMATION
  Report Type: 
  Country: None (occurrence: None)
  Receive Date: 20041116
  Receipt Date: 20040823
  Transmission Date: 20050328
  Serious: Yes (Other)
  Sender: FDA-Public Use
  Company Number: US-JNJFOC-20040808618

PATIENT
  Age: 59 Year
  Sex: Male
  Weight: 68.0396 kg

DRUGS (6)
  1. MOTRIN [Suspect]
     Indication: ARTHRITIS
  2. ANALGESIC BALM ONT [Suspect]
     Indication: ARTHRALGIA
     Dosage: SEE IMAGE
     Route: 062
     Dates: start: 20040812, end: 20040818
  3. ANALGESIC BALM ONT [Suspect]
     Indication: ARTHRALGIA
     Dosage: SEE IMAGE
     Route: 062
     Dates: start: 20040822, end: 20040822
  4. ANALGESIC BALM ONT [Suspect]
     Indication: ARTHRALGIA
     Dosage: 1 IN 1 DAY, TRANSDERMAL
     Route: 062
     Dates: start: 20040819, end: 20040821
  5. DILANTIN [Concomitant]
  6. PHENOBARBITAL TAB [Concomitant]

REACTIONS (1)
  - ANGIONEUROTIC OEDEMA [None]
